FAERS Safety Report 9084862 (Version 1)
Quarter: 2013Q1

REPORT INFORMATION
  Report Type: Report from Study
  Country: US (occurrence: US)
  Receive Date: 20130131
  Receipt Date: 20130131
  Transmission Date: 20140127
  Serious: No
  Sender: FDA-Public Use
  Company Number: US-ABBOTT-12P-163-0996206-00

PATIENT
  Age: 50 Year
  Sex: Female

DRUGS (23)
  1. HUMIRA [Suspect]
     Indication: CROHN^S DISEASE
     Dosage: LOADING DOSE
     Dates: start: 20120914
  2. HUMIRA [Suspect]
     Dates: start: 20120929
  3. LYRICA [Concomitant]
     Indication: PAIN
     Dosage: AT BEDTIME
     Route: 048
  4. LYRICA [Concomitant]
     Indication: HEADACHE
  5. AMITRIPTYLINE [Concomitant]
     Indication: HEADACHE
     Dosage: AT BEDTIME
  6. ASA [Concomitant]
     Indication: PROPHYLAXIS
     Dosage: 81 MG DAILY
     Route: 048
  7. CALCIUM [Concomitant]
     Indication: OSTEOPOROSIS
     Dosage: 600 MG DAILY
     Route: 048
  8. POTASSIUM [Concomitant]
     Indication: MUSCLE SPASMS
     Dosage: 99 MG DAILY
     Route: 048
  9. VITAMIN B12 [Concomitant]
     Indication: VITAMIN SUPPLEMENTATION
     Dosage: 100 MCG DAILY
     Route: 048
  10. VITAMIN D [Concomitant]
     Indication: VITAMIN D DECREASED
     Dosage: 50,000 IU WEEKLY
     Route: 048
  11. TRAMADOL [Concomitant]
     Indication: PAIN
     Dosage: 50MG 1 TO 2 PILLS AS NEEDED EVERY 6 HOURS
  12. TRAMADOL [Concomitant]
     Indication: HEADACHE
  13. CLONIDINE [Concomitant]
     Indication: HYPERTENSION
     Route: 048
  14. REQUIP [Concomitant]
     Indication: MUSCLE SPASMS
     Dosage: AT BEDTIME
  15. ESTRADIOL [Concomitant]
     Indication: HORMONE REPLACEMENT THERAPY
     Dosage: 2 MG DAILY
     Route: 048
  16. RANITIDINE HCL [Concomitant]
     Indication: GASTROOESOPHAGEAL REFLUX DISEASE
     Route: 048
  17. ASACOL [Concomitant]
     Indication: CROHN^S DISEASE
     Route: 048
  18. OMEPRAZOLE [Concomitant]
     Indication: GASTROOESOPHAGEAL REFLUX DISEASE
     Dosage: 20 MG DAILY
     Route: 048
  19. DICYCLOMINE HCL [Concomitant]
     Indication: MUSCLE SPASMS
     Dosage: 40 MG (2, 10MG IN A.M./1, 10 MG IN P.M.)
  20. DICYCLOMINE HCL [Concomitant]
     Indication: GASTROINTESTINAL PAIN
  21. CELEXA [Concomitant]
     Indication: DEPRESSION
     Dosage: AT BEDTIME
     Route: 048
  22. CARVEDILOL [Concomitant]
     Indication: HYPERTENSION
     Route: 048
  23. METHOCARBAMOL [Concomitant]
     Indication: MUSCLE RELAXANT THERAPY
     Route: 048

REACTIONS (1)
  - Postoperative wound infection [Not Recovered/Not Resolved]
